FAERS Safety Report 4590657-7 (Version None)
Quarter: 2005Q1

REPORT INFORMATION
  Report Type: 
  Country: None (occurrence: None)
  Receive Date: 20050218
  Receipt Date: 20050218
  Transmission Date: 20050727
  Serious: Yes (Other)
  Sender: FDA-Public Use
  Company Number: None

PATIENT
  Age: 46 Year
  Sex: Male
  Weight: 77.1115 kg

DRUGS (6)
  1. CITALOPRAM HBR 40MG TABS [Suspect]
     Indication: DEPRESSION
     Dosage: 1 PO QHS
     Route: 048
     Dates: start: 20050212, end: 20050213
  2. WELLBUTRIN [Concomitant]
  3. MINOCYCLINE HCL [Concomitant]
  4. VITAMIN C [Concomitant]
  5. CALCIUM GLUCONATE [Concomitant]
  6. MULTI-VITAMIN [Concomitant]

REACTIONS (4)
  - AGITATION [None]
  - INSOMNIA [None]
  - PHARMACEUTICAL PRODUCT COMPLAINT [None]
  - TREMOR [None]
